FAERS Safety Report 16245294 (Version 1)
Quarter: 2019Q2

REPORT INFORMATION
  Report Type: Report from Study
  Country: BR (occurrence: BR)
  Receive Date: 20190426
  Receipt Date: 20190426
  Transmission Date: 20190711
  Serious: Yes (Hospitalization)
  Sender: FDA-Public Use
  Company Number: PHHY2018BR075429

PATIENT
  Age: 63 Year
  Sex: Female
  Weight: 57 kg

DRUGS (2)
  1. SANDOSTATIN LAR DEPOT [Suspect]
     Active Substance: OCTREOTIDE ACETATE
     Dosage: 30 MG, QMO
     Route: 030
  2. SANDOSTATIN LAR DEPOT [Suspect]
     Active Substance: OCTREOTIDE ACETATE
     Indication: NEUROENDOCRINE TUMOUR
     Dosage: 20 MG, QMO
     Route: 030
     Dates: start: 20160601

REACTIONS (8)
  - Feeding disorder [Not Recovered/Not Resolved]
  - Abdominal pain upper [Unknown]
  - Erythema [Recovering/Resolving]
  - Dysgeusia [Unknown]
  - Flushing [Recovering/Resolving]
  - Abdominal pain [Not Recovered/Not Resolved]
  - Hepatic pain [Unknown]
  - Temperature intolerance [Not Recovered/Not Resolved]

NARRATIVE: CASE EVENT DATE: 20190208
